FAERS Safety Report 5339118-8 (Version None)
Quarter: 2007Q2

REPORT INFORMATION
  Report Type: 
  Country: None (occurrence: None)
  Receive Date: 20070530
  Receipt Date: 20070521
  Transmission Date: 20071010
  Serious: Yes (Hospitalization)
  Sender: FDA-Public Use
  Company Number: PT-SHR-PT-2007-018608

PATIENT
  Age: 32 Year
  Sex: Female
  Weight: 61.5 kg

DRUGS (3)
  1. YASMIN [Suspect]
     Dosage: 1 TAB(S), UNK
     Route: 048
     Dates: start: 20000101
  2. ETANERCEPT [Suspect]
     Indication: ANKYLOSING SPONDYLITIS
     Dosage: 50 MG, UNK
     Dates: start: 20061016, end: 20061211
  3. DICLOFENAC [Concomitant]
     Indication: ANKYLOSING SPONDYLITIS
     Dosage: 225 MG, UNK
     Dates: start: 20060501

REACTIONS (4)
  - AUTOSOMAL CHROMOSOME ANOMALY [None]
  - CONVERSION DISORDER [None]
  - HEMIPARESIS [None]
  - MUSCULAR WEAKNESS [None]
